FAERS Safety Report 11505743 (Version 1)
Quarter: 2015Q3

REPORT INFORMATION
  Report Type: Spontaneous
  Country: US (occurrence: US)
  Receive Date: 20150915
  Receipt Date: 20150915
  Transmission Date: 20151125
  Serious: No
  Sender: FDA-Public Use
  Company Number: US-ROCHE-778739

PATIENT
  Age: 54 Year
  Sex: Female

DRUGS (3)
  1. RIBASPHERE RIBAPAK [Suspect]
     Active Substance: RIBAVIRIN
     Indication: HEPATITIS C
     Dosage: RIBASPHERE/RIBAPAK 600/400 MG DIVIDED DOSES
     Route: 048
  2. PEGASYS [Suspect]
     Active Substance: PEGINTERFERON ALFA-2A
     Indication: HEPATITIS C
     Dosage: PRE-FILLED SYRINGE
     Route: 058
  3. PROZAC [Concomitant]
     Active Substance: FLUOXETINE HYDROCHLORIDE
     Route: 065

REACTIONS (14)
  - Injection site reaction [Unknown]
  - Photopsia [Unknown]
  - Neck pain [Not Recovered/Not Resolved]
  - Diarrhoea [Unknown]
  - Rash erythematous [Unknown]
  - Arthralgia [Unknown]
  - Depression [Unknown]
  - Pyrexia [Unknown]
  - Pain [Unknown]
  - Vertigo [Unknown]
  - Dyspnoea [Not Recovered/Not Resolved]
  - Musculoskeletal pain [Recovered/Resolved]
  - Dizziness [Not Recovered/Not Resolved]
  - Tachycardia [Recovered/Resolved]

NARRATIVE: CASE EVENT DATE: 20110320
